FAERS Safety Report 7910703-X (Version None)
Quarter: 2011Q4

REPORT INFORMATION
  Report Type: 
  Country: None (occurrence: None)
  Receive Date: 20111111
  Receipt Date: 20111107
  Transmission Date: 20120403
  Serious: Yes (Life-Threatening)
  Sender: FDA-Public Use
  Company Number: FR-ASTRAZENECA-2011SE67319

PATIENT
  Age: 25505 Day
  Sex: Female

DRUGS (16)
  1. ATROVENT [Suspect]
     Indication: ASTHMA
     Route: 055
     Dates: start: 20080101
  2. FENOFIBRATE [Suspect]
  3. SINGULAIR [Suspect]
     Indication: ASTHMA
     Route: 048
  4. BRICANYL [Suspect]
     Indication: ASTHMA
     Route: 055
     Dates: start: 20080101
  5. CACIT VITAMINE D3 [Suspect]
  6. ACETAMINOPHEN [Suspect]
  7. SYMBICORT [Suspect]
     Indication: ASTHMA
     Dosage: 320/9 UG PER DOSE, TWO INHALATIONS PER DAY
     Route: 055
     Dates: start: 20100101
  8. DEDROGYL [Suspect]
  9. XOLAIR [Suspect]
     Indication: ASTHMA
     Route: 058
     Dates: start: 20080710, end: 20090801
  10. PREDNISONE [Suspect]
     Indication: ASTHMA
     Route: 048
     Dates: start: 20060101
  11. ALDACTONE [Suspect]
  12. PANTOPRAZOLE SODIUM [Suspect]
  13. UTEPLEX [Suspect]
  14. DESLORATADINE [Suspect]
  15. XOLAIR [Suspect]
     Route: 058
     Dates: start: 20090801, end: 20100805
  16. PROTELOS [Suspect]
     Indication: OSTEOPOROSIS
     Route: 048
     Dates: start: 20100101

REACTIONS (3)
  - LUNG NEOPLASM MALIGNANT [None]
  - PANCOAST'S SYNDROME [None]
  - DRUG INEFFECTIVE [None]
